FAERS Safety Report 9330625 (Version 2)
Quarter: 2013Q3

REPORT INFORMATION
  Report Type: Report from Study
  Country: FR (occurrence: FR)
  Receive Date: 20130605
  Receipt Date: 20130820
  Transmission Date: 20140515
  Serious: Yes (Death)
  Sender: FDA-Public Use
  Company Number: FR-ROCHE-1232195

PATIENT
  Age: 72 Year
  Sex: Female

DRUGS (5)
  1. BEVACIZUMAB [Suspect]
     Indication: COLON CANCER
     Dosage: LAST DOSE ADMINISTERED WAS 300 MG
     Route: 065
  2. IRINOTECAN [Suspect]
     Indication: COLON CANCER
     Route: 065
  3. FLUOROURACIL [Suspect]
     Indication: COLON CANCER
     Route: 040
  4. FLUOROURACIL [Suspect]
     Dosage: CONTINUOUS DOSING
     Route: 065
  5. FOLINIC ACID [Suspect]
     Indication: COLON CANCER
     Route: 065

REACTIONS (1)
  - Septic shock [Fatal]
